FAERS Safety Report 18571441 (Version 3)
Quarter: 2021Q1

REPORT INFORMATION
  Report Type: Spontaneous
  Country: NL (occurrence: NL)
  Receive Date: 20201202
  Receipt Date: 20210226
  Transmission Date: 20210419
  Serious: Yes (Life-Threatening, Hospitalization, Other)
  Sender: FDA-Public Use
  Company Number: NL-JNJFOC-20201149874

PATIENT
  Age: 72 Year
  Sex: Male

DRUGS (12)
  1. CARBOPLATIN. [Suspect]
     Active Substance: CARBOPLATIN
     Indication: OESOPHAGEAL SQUAMOUS CELL CARCINOMA
     Dates: start: 2019
  2. FRAXIPARINE [Concomitant]
     Active Substance: NADROPARIN CALCIUM
     Indication: PROPHYLAXIS
     Dosage: PROPHYLACTIC DOSE
  3. XARELTO [Suspect]
     Active Substance: RIVAROXABAN
     Indication: ARRHYTHMIA
     Dosage: 15 MG, BID
     Route: 048
  4. ROSUVASTATIN. [Concomitant]
     Active Substance: ROSUVASTATIN
  5. CARBASALATE CALCIUM [Concomitant]
     Active Substance: CARBASPIRIN CALCIUM
     Dosage: POWDER
  6. PACLITAXEL. [Suspect]
     Active Substance: PACLITAXEL
     Indication: OESOPHAGEAL SQUAMOUS CELL CARCINOMA
     Dates: start: 2019
  7. LORAZEPAM. [Concomitant]
     Active Substance: LORAZEPAM
     Indication: ANXIETY
     Dosage: 1 MG, QD
  8. LORAZEPAM. [Concomitant]
     Active Substance: LORAZEPAM
     Indication: ANXIETY
     Dosage: 10 MG, QD
  9. QUETIAPINE. [Interacting]
     Active Substance: QUETIAPINE
     Indication: ANXIETY
  10. PERINDOPRIL [Concomitant]
     Active Substance: PERINDOPRIL
     Dosage: 2 MG, QD
  11. FRAXIPARINE [Concomitant]
     Active Substance: NADROPARIN CALCIUM
     Indication: PULMONARY EMBOLISM
     Dosage: 2DD1 7600IE, THERAPEUTIC DOSE
  12. XARELTO [Interacting]
     Active Substance: RIVAROXABAN
     Indication: PULMONARY EMBOLISM

REACTIONS (5)
  - Chest pain [Recovering/Resolving]
  - Drug interaction [Recovering/Resolving]
  - Hypotension [Unknown]
  - Pericardial haemorrhage [Recovering/Resolving]
  - Dyspnoea [Recovering/Resolving]
